FAERS Safety Report 17240057 (Version 6)
Quarter: 2020Q2

REPORT INFORMATION
  Report Type: Report from Study
  Country: US (occurrence: US)
  Receive Date: 20200107
  Receipt Date: 20200625
  Transmission Date: 20200713
  Serious: Yes (Hospitalization, Other)
  Sender: FDA-Public Use
  Company Number: US-SHIRE-US202000026

PATIENT
  Age: 46 Year
  Sex: Female

DRUGS (1)
  1. PARATHYROID HORMONE [Suspect]
     Active Substance: PARATHYROID HORMONE
     Indication: PRODUCT USED FOR UNKNOWN INDICATION
     Dosage: 75 MICROGRAM, 1X/DAY:QD
     Route: 058
     Dates: start: 20170331

REACTIONS (9)
  - Device leakage [Unknown]
  - Migraine [Unknown]
  - Incorrect dose administered [Unknown]
  - Intentional device use issue [Unknown]
  - Blood calcium decreased [Recovering/Resolving]
  - Chest pain [Unknown]
  - Tetany [Recovered/Resolved]
  - Injection site haemorrhage [Recovering/Resolving]
  - Vitamin D decreased [Recovering/Resolving]

NARRATIVE: CASE EVENT DATE: 20191126
